FAERS Safety Report 18140515 (Version 4)
Quarter: 2022Q1

REPORT INFORMATION
  Report Type: Spontaneous
  Country: US (occurrence: US)
  Receive Date: 20200812
  Receipt Date: 20220329
  Transmission Date: 20220423
  Serious: Yes (Hospitalization, Other)
  Sender: FDA-Public Use
  Company Number: US-PFIZER INC-2020307165

PATIENT
  Age: 70 Year
  Sex: Female

DRUGS (3)
  1. PHENYTOIN SODIUM [Suspect]
     Active Substance: PHENYTOIN SODIUM
     Indication: Seizure
     Dosage: UNK
  2. DEPAKOTE ER [Concomitant]
     Active Substance: DIVALPROEX SODIUM
     Indication: Petit mal epilepsy
     Dosage: 1500 MG, DAILY
     Route: 048
  3. LEVOTHYROXINE [Concomitant]
     Active Substance: LEVOTHYROXINE
     Indication: Thyroid disorder
     Dosage: 175MMG AND 0.25, 1 OF EACH DOSE THREE DAYS PER WEEK, THE REST OF THE 4 DAYS TAKE 175MMG

REACTIONS (4)
  - Seizure [Unknown]
  - Delirium tremens [Not Recovered/Not Resolved]
  - Balance disorder [Unknown]
  - Drug ineffective [Not Recovered/Not Resolved]
